FAERS Safety Report 6635102-2 (Version None)
Quarter: 2010Q1

REPORT INFORMATION
  Report Type: 
  Country: None (occurrence: None)
  Receive Date: 20100315
  Receipt Date: 20100303
  Transmission Date: 20100710
  Serious: Yes (Other)
  Sender: FDA-Public Use
  Company Number: PHEH2010US02840

PATIENT
  Sex: Male

DRUGS (7)
  1. TASIGNA [Suspect]
     Indication: CHRONIC MYELOID LEUKAEMIA
     Dosage: 400 MG, BID
     Route: 048
     Dates: start: 20100219
  2. ABILIFY [Concomitant]
  3. OXYCONTIN [Concomitant]
     Indication: PAIN
     Dosage: 10 DAILY
  4. CYMBALTA [Concomitant]
     Indication: DEPRESSION
     Dosage: DAILY
  5. CRESTOR [Concomitant]
     Indication: HYPERCHOLESTEROLAEMIA
     Dosage: DAILY
  6. NIASPAN [Concomitant]
     Indication: HYPERCHOLESTEROLAEMIA
  7. COZAAR [Concomitant]
     Indication: HYPERTENSION

REACTIONS (9)
  - ERYTHEMA [None]
  - EYELID OEDEMA [None]
  - FLUSHING [None]
  - OEDEMA MOUTH [None]
  - PRURITUS [None]
  - RASH [None]
  - SWELLING FACE [None]
  - TYPE I HYPERSENSITIVITY [None]
  - URTICARIA [None]
